FAERS Safety Report 4379248-0 (Version None)
Quarter: 2004Q2

REPORT INFORMATION
  Report Type: 
  Country: None (occurrence: None)
  Receive Date: 20040614
  Receipt Date: 20040602
  Transmission Date: 20050107
  Serious: No
  Sender: FDA-Public Use
  Company Number: 04P-163-0259190-00

PATIENT
  Age: 36 Year
  Sex: Female
  Weight: 68.0396 kg

DRUGS (17)
  1. HUMIRA 40 MG/ 0.8 ML PRE-FILLED SYRINGE (HUMIRA) (ADALIMUMAB) (ADALIMU [Suspect]
     Indication: ANKYLOSING SPONDYLITIS
     Dosage: 40 MG, 1 IN 2 WK, SUBCUTANEOUS
     Route: 058
     Dates: start: 20030201, end: 20030901
  2. HUMIRA 40 MG/ 0.8 ML PRE-FILLED SYRINGE (HUMIRA) (ADALIMUMAB) (ADALIMU [Suspect]
     Indication: ANKYLOSING SPONDYLITIS
     Dosage: 40 MG, 1 IN 2 WK, SUBCUTANEOUS
     Route: 058
     Dates: start: 20030901, end: 20040120
  3. HUMIRA 40 MG/ 0.8 ML PRE-FILLED SYRINGE (HUMIRA) (ADALIMUMAB) (ADALIMU [Suspect]
     Indication: ANKYLOSING SPONDYLITIS
     Dosage: 40 MG, 1 IN 2 WK, SUBCUTANEOUS
     Route: 058
     Dates: start: 20040121, end: 20040405
  4. BUPROPION HYDROCHLORIDE [Concomitant]
  5. NEFAZODONE HYDROCHLORIDE [Concomitant]
  6. CLONAZEPAM [Concomitant]
  7. TOLECTIN [Concomitant]
  8. SULFASALAZINE [Concomitant]
  9. PENTASSA [Concomitant]
  10. GABAPENTIN [Concomitant]
  11. TIZANIDINE HYDROCHLORIDE [Concomitant]
  12. CYPROHEPTADINE HYDROCHLORIDE [Concomitant]
  13. LANSOPRAZOLE [Concomitant]
  14. CEFATRIZINE PROPYLENGLYCOLATE SULFATE [Concomitant]
  15. BUCINDOLOL HYDROCHLORIDE [Concomitant]
  16. PROPACET 100 [Concomitant]
  17. INFLIXIMAB [Concomitant]

REACTIONS (3)
  - HEADACHE [None]
  - MULTIPLE SCLEROSIS [None]
  - NUCLEAR MAGNETIC RESONANCE IMAGING BRAIN ABNORMAL [None]
